FAERS Safety Report 8280425-7 (Version None)
Quarter: 2012Q2

REPORT INFORMATION
  Report Type: 
  Country: None (occurrence: None)
  Receive Date: 20120412
  Receipt Date: 20111027
  Transmission Date: 20120825
  Serious: No
  Sender: FDA-Public Use
  Company Number: US-ASTRAZENECA-2011SE65130

PATIENT
  Age: 78 Year
  Sex: Female
  Weight: 77.1 kg

DRUGS (6)
  1. NEXIUM [Suspect]
     Indication: GASTROOESOPHAGEAL REFLUX DISEASE
     Route: 048
  2. VITAMIN TAB [Concomitant]
  3. NEXIUM [Suspect]
     Indication: HIATUS HERNIA
     Route: 048
  4. TEMAZEPAM [Concomitant]
     Indication: SLEEP DISORDER
  5. HYDROCORTISONE [Concomitant]
  6. PROZAC [Concomitant]

REACTIONS (6)
  - IRRITABLE BOWEL SYNDROME [None]
  - OROPHARYNGEAL PAIN [None]
  - DRUG DOSE OMISSION [None]
  - CONDITION AGGRAVATED [None]
  - GASTROOESOPHAGEAL REFLUX DISEASE [None]
  - IMMUNE SYSTEM DISORDER [None]
